FAERS Safety Report 7587735-7 (Version None)
Quarter: 2011Q3

REPORT INFORMATION
  Report Type: 
  Country: None (occurrence: None)
  Receive Date: 20110704
  Receipt Date: 20110622
  Transmission Date: 20111222
  Serious: Yes (Other)
  Sender: FDA-Public Use
  Company Number: US-AMGEN-USASP2011028424

PATIENT
  Age: 55 Year
  Sex: Female

DRUGS (8)
  1. VALACYCLOVIR HYDROCHLORIDE [Concomitant]
  2. SINGULAIR [Concomitant]
  3. PREDNISONE [Concomitant]
     Dosage: UNK
     Dates: start: 20110118
  4. ENBREL [Suspect]
     Indication: ANKYLOSING SPONDYLITIS
     Dosage: 50 MG, QWK
     Dates: start: 20110518
  5. DOXYCYCLINE [Concomitant]
  6. SIMVASTATIN [Concomitant]
  7. FEXOFENADINE [Concomitant]
  8. ZOLPIDEM [Concomitant]

REACTIONS (12)
  - ARTHROPOD BITE [None]
  - BALANCE DISORDER [None]
  - EYE INFECTION [None]
  - INJECTION SITE PRURITUS [None]
  - CONNECTIVE TISSUE DISORDER [None]
  - EYE PAIN [None]
  - ANTI-THYROID ANTIBODY POSITIVE [None]
  - INJECTION SITE SWELLING [None]
  - INJECTION SITE HAEMATOMA [None]
  - SJOGREN'S SYNDROME [None]
  - INJECTION SITE ERYTHEMA [None]
  - INJECTION SITE REACTION [None]
